FAERS Safety Report 5661714-9 (Version None)
Quarter: 2008Q1

REPORT INFORMATION
  Report Type: 
  Country: None (occurrence: None)
  Receive Date: 20080312
  Receipt Date: 20080307
  Transmission Date: 20080703
  Serious: Yes (Death)
  Sender: FDA-Public Use
  Company Number: B0508474A

PATIENT
  Age: 52 Year
  Sex: Female

DRUGS (8)
  1. PAXIL [Suspect]
     Indication: DEPRESSION
     Dosage: 10MG PER DAY
     Route: 048
     Dates: start: 20080118
  2. AMOBARBITAL SODIUM [Suspect]
     Route: 048
     Dates: start: 20070101
  3. UNKNOWN SLEEPING PILL [Concomitant]
     Route: 065
  4. CHINESE MEDICATION [Concomitant]
     Indication: DEPRESSION
     Route: 048
     Dates: start: 20070925
  5. CHINESE MEDICATION [Concomitant]
     Route: 048
     Dates: start: 20070925
  6. MYSLEE [Concomitant]
     Indication: INSOMNIA
     Route: 048
     Dates: start: 20070927
  7. NITRAZEPAM [Concomitant]
     Indication: INSOMNIA
     Dosage: 5MG PER DAY
     Route: 048
     Dates: start: 20080112
  8. CHINESE MEDICINE [Concomitant]
     Dosage: 1G THREE TIMES PER DAY
     Route: 048
     Dates: start: 20080201

REACTIONS (2)
  - CHOKING SENSATION [None]
  - COMPLETED SUICIDE [None]
